FAERS Safety Report 25706516 (Version 1)
Quarter: 2025Q3

REPORT INFORMATION
  Report Type: Spontaneous
  Country: US (occurrence: US)
  Receive Date: 20250820
  Receipt Date: 20250820
  Transmission Date: 20251020
  Serious: Yes (Other)
  Sender: CATALYST PHARMA
  Company Number: US-CATALYST PHARMACEUTICALS-US-CATA-25-00652

PATIENT
  Sex: Male
  Weight: 29.569 kg

DRUGS (15)
  1. AGAMREE [Suspect]
     Active Substance: VAMOROLONE
     Indication: Duchenne muscular dystrophy
     Dosage: 4.5 ML ONCE A DAY
     Route: 048
     Dates: start: 20240424, end: 20250322
  2. AGAMREE [Suspect]
     Active Substance: VAMOROLONE
     Dosage: 4.3 ML ONCE A DAY
     Route: 048
     Dates: start: 20250322
  3. CALCITRIOL [Concomitant]
     Active Substance: CALCITRIOL
     Indication: Premedication
     Dosage: 0.25 MCG ONCE A DAY
     Route: 065
  4. CALCIUM CARBONATE [Concomitant]
     Active Substance: CALCIUM CARBONATE
     Indication: Premedication
     Route: 065
  5. COREG [Concomitant]
     Active Substance: CARVEDILOL
     Indication: Cardiovascular disorder
     Dosage: 3.75 MG TWICE A DAY
     Route: 065
  6. EXONDYS [Concomitant]
     Indication: Duchenne muscular dystrophy
     Dosage: 900 MG ONCE A WEEK
     Route: 065
  7. LIDOCAINE [Concomitant]
     Active Substance: LIDOCAINE
     Indication: Supportive care
     Dosage: ONE APPLICATION ONCE A WEEK
     Route: 061
  8. MAGNESIUM GLUCONATE [Concomitant]
     Active Substance: MAGNESIUM GLUCONATE
     Indication: Hypovitaminosis
     Dosage: 120 MG A DAY
     Route: 065
  9. MIRALAX [Concomitant]
     Active Substance: POLYETHYLENE GLYCOL 3350
     Indication: Constipation
     Dosage: HALF A CAP EVERY OTHER DAY
     Route: 065
  10. QBRELIS [Concomitant]
     Active Substance: LISINOPRIL
     Indication: Cardiovascular disorder
     Dosage: 10 ML ONCE A DAY
     Route: 048
  11. RIZATRIPTAN [Concomitant]
     Active Substance: RIZATRIPTAN
     Indication: Migraine
     Route: 065
  12. SOLU-CORTEF [Concomitant]
     Active Substance: HYDROCORTISONE SODIUM SUCCINATE
     Indication: Adrenal insufficiency
     Route: 065
  13. VITAMIN D [Concomitant]
     Active Substance: VITAMIN D NOS
     Indication: Hypovitaminosis
     Dosage: 2 DROPS TWICE A DAY
     Route: 065
  14. PROBIOTICS NOS [Concomitant]
     Active Substance: PROBIOTICS NOS
     Indication: Gastrointestinal disorder
     Dosage: ONE DAILY
     Route: 065
  15. ZOLEDRONIC ACID [Concomitant]
     Active Substance: ZOLEDRONIC ACID
     Indication: Osteoporosis
     Route: 065

REACTIONS (2)
  - Atypical pneumonia [Recovering/Resolving]
  - Weight decreased [Not Recovered/Not Resolved]

NARRATIVE: CASE EVENT DATE: 20250101
